FAERS Safety Report 16810576 (Version 1)
Quarter: 2019Q3

REPORT INFORMATION
  Report Type: Spontaneous
  Country: US (occurrence: US)
  Receive Date: 20190916
  Receipt Date: 20190916
  Transmission Date: 20191005
  Serious: No
  Sender: FDA-Public Use
  Company Number: US-HORIZON-VIM-0329-2019

PATIENT
  Age: 66 Year
  Sex: Female

DRUGS (1)
  1. VIMOVO [Suspect]
     Active Substance: ESOMEPRAZOLE MAGNESIUM\NAPROXEN
     Indication: ARTHRITIS
     Dosage: 1 TAB DAILY
     Route: 048
     Dates: end: 20190820

REACTIONS (4)
  - Off label use [Unknown]
  - Product distribution issue [Unknown]
  - Therapy cessation [Unknown]
  - Arthralgia [Unknown]

NARRATIVE: CASE EVENT DATE: 20190819
